FAERS Safety Report 4616530-3 (Version None)
Quarter: 2005Q1

REPORT INFORMATION
  Report Type: 
  Country: None (occurrence: None)
  Receive Date: 20050318
  Receipt Date: 20050308
  Transmission Date: 20050727
  Serious: Yes (Life-Threatening, Hospitalization)
  Sender: FDA-Public Use
  Company Number: HQWYE003210MAR05

PATIENT
  Age: 41 Year
  Sex: Female

DRUGS (1)
  1. PREMARIN [Suspect]

REACTIONS (16)
  - CONDITION AGGRAVATED [None]
  - DEGENERATION OF UTERINE FIBROID [None]
  - HAEMATOCRIT DECREASED [None]
  - HAEMOGLOBIN DECREASED [None]
  - LOWER GASTROINTESTINAL HAEMORRHAGE [None]
  - METASTASES TO GASTROINTESTINAL TRACT [None]
  - METASTASES TO LARGE INTESTINE [None]
  - METASTASES TO LUNG [None]
  - METASTASES TO PERINEUM [None]
  - METASTASES TO SMALL INTESTINE [None]
  - METASTASIS [None]
  - METASTATIC NEOPLASM [None]
  - OESTROGEN RECEPTOR ASSAY POSITIVE [None]
  - PALPITATIONS [None]
  - PROGESTERONE RECEPTOR ASSAY POSITIVE [None]
  - TACHYCARDIA [None]
